FAERS Safety Report 7765867-8 (Version None)
Quarter: 2011Q3

REPORT INFORMATION
  Report Type: 
  Country: None (occurrence: None)
  Receive Date: 20110921
  Receipt Date: 20110909
  Transmission Date: 20111222
  Serious: Yes (Hospitalization)
  Sender: FDA-Public Use
  Company Number: JP-ELI_LILLY_AND_COMPANY-JP201108004696

PATIENT
  Age: 55 Year
  Sex: Male

DRUGS (2)
  1. FLUNITRAZEPAM [Concomitant]
     Route: 048
  2. CYMBALTA [Suspect]
     Route: 048

REACTIONS (1)
  - CHEMICAL POISONING [None]
